FAERS Safety Report 11195202 (Version 2)
Quarter: 2017Q1

REPORT INFORMATION
  Report Type: Spontaneous
  Country: US (occurrence: US)
  Receive Date: 20150617
  Receipt Date: 20170221
  Transmission Date: 20170428
  Serious: Yes (Other)
  Sender: FDA-Public Use
  Company Number: US-ELI_LILLY_AND_COMPANY-US201506004695

PATIENT
  Sex: Male

DRUGS (2)
  1. CYMBALTA [Suspect]
     Active Substance: DULOXETINE HYDROCHLORIDE
     Indication: PRODUCT USED FOR UNKNOWN INDICATION
     Dosage: 20 MG, UNKNOWN
     Route: 065
  2. CYMBALTA [Suspect]
     Active Substance: DULOXETINE HYDROCHLORIDE
     Dosage: 30 MG, UNKNOWN
     Route: 065

REACTIONS (14)
  - Drug withdrawal syndrome [Unknown]
  - Irritability [Unknown]
  - Agitation [Unknown]
  - Restlessness [Unknown]
  - Anxiety [Unknown]
  - Insomnia [Unknown]
  - Negative thoughts [Unknown]
  - Disturbance in attention [Unknown]
  - Asthenia [Unknown]
  - Mood swings [Unknown]
  - Paraesthesia [Unknown]
  - Affect lability [Unknown]
  - Fatigue [Unknown]
  - Suicidal ideation [Unknown]
